FAERS Safety Report 6427667-0 (Version None)
Quarter: 2009Q4

REPORT INFORMATION
  Report Type: 
  Country: None (occurrence: None)
  Receive Date: 20091105
  Receipt Date: 20091027
  Transmission Date: 20100525
  Serious: Yes (Life-Threatening)
  Sender: FDA-Public Use
  Company Number: GB-RANBAXY-2009RR-28866

PATIENT
  Age: 81 Year
  Sex: Female
  Weight: 60 kg

DRUGS (4)
  1. TOPIRAMATE [Suspect]
     Indication: ESSENTIAL TREMOR
     Dosage: 25 MG, QD
     Route: 048
     Dates: start: 20080424, end: 20080508
  2. AMLODIPINE [Concomitant]
     Indication: HYPERTENSION
     Dosage: 5 MG, UNK
     Route: 048
  3. FUROSEMIDE [Concomitant]
     Indication: CARDIAC FAILURE CONGESTIVE
     Dosage: 40 MG, UNK
     Route: 048
  4. QUININE [Concomitant]
     Indication: MUSCLE SPASMS
     Dosage: 300 MG, UNK
     Route: 048

REACTIONS (2)
  - ANXIETY [None]
  - SUICIDAL IDEATION [None]
